FAERS Safety Report 25191049 (Version 1)
Quarter: 2025Q2

REPORT INFORMATION
  Report Type: Spontaneous
  Country: US (occurrence: US)
  Receive Date: 20250411
  Receipt Date: 20250411
  Transmission Date: 20250716
  Serious: No
  Sender: MYLAN
  Company Number: US-MYLANLABS-2025M1028881

PATIENT
  Sex: Female

DRUGS (1)
  1. ESTRADIOL TRANSDERMAL SYSTEM [Suspect]
     Active Substance: ESTRADIOL
     Indication: Menopausal symptoms
     Dosage: 0.1 MILLIGRAM, QD (PER DAY, TWICE WEEKLY)

REACTIONS (4)
  - Muscle spasms [Recovering/Resolving]
  - Product substitution issue [Unknown]
  - Product design issue [Unknown]
  - Product adhesion issue [Unknown]
